FAERS Safety Report 8874179 (Version 1)
Quarter: 2012Q4

REPORT INFORMATION
  Report Type: 
  Country: US (occurrence: US)
  Receive Date: 20121023
  Receipt Date: 20121023
  Transmission Date: 20130627
  Serious: No
  Sender: FDA-Public Use
  Company Number: US-PFIZER INC-2012262475

PATIENT
  Sex: Female
  Weight: 99.77 kg

DRUGS (10)
  1. NEURONTIN [Suspect]
     Indication: NEUROPATHY PERIPHERAL
     Dosage: 100 mg, 3x/day
     Dates: start: 1988
  2. NEURONTIN [Suspect]
     Dosage: UNK
  3. LYRICA [Concomitant]
     Indication: NERVE INJURY
     Dosage: 300 mg, 1x/day
  4. LEVOTHYROXINE [Concomitant]
     Indication: HYPOTHYROIDISM
     Dosage: 150 ug, 1x/day
  5. METOPROLOL [Concomitant]
     Dosage: 25 mg, 2x/day
  6. LISINOPRIL W/HYDROCHLOROTHIAZIDE [Concomitant]
     Dosage: 25/12.5 mg, daily
  7. OMEPRAZOLE [Concomitant]
     Dosage: 20 mg, 1x/day
  8. PRAVASTATIN [Concomitant]
     Dosage: 80 mg, 1x/day
  9. SERTRALINE [Concomitant]
     Dosage: 100 mg, 1x/day
  10. OXYCONTIN [Concomitant]
     Dosage: 20 mg, 2x/day

REACTIONS (1)
  - Drug ineffective [Unknown]
